FAERS Safety Report 9069064 (Version 2)
Quarter: 2014Q2

REPORT INFORMATION
  Report Type: Spontaneous
  Country: US (occurrence: US)
  Receive Date: 20130215
  Receipt Date: 20140527
  Transmission Date: 20141212
  Serious: Yes (Other)
  Sender: FDA-Public Use
  Company Number: US-BAYER-2013-016990

PATIENT
  Age: 21 Year
  Sex: Female

DRUGS (12)
  1. MIRENA [Suspect]
     Dosage: 20 MCG/24HR, CONT
     Route: 015
     Dates: start: 20100106, end: 20111019
  2. MOTRIN [Concomitant]
  3. VICODIN [Concomitant]
  4. ZOFRAN [Concomitant]
  5. MORPHINE [Concomitant]
  6. COMPAZINE [Concomitant]
  7. FLAGYL [Concomitant]
  8. DILAUDID [Concomitant]
  9. ZOSYN [Concomitant]
  10. CLINDAMYCIN [Concomitant]
  11. CIPRO [Concomitant]
  12. CEPHALEXIN [Concomitant]

REACTIONS (3)
  - Complication of device removal [None]
  - Injury [None]
  - Device expulsion [None]
